FAERS Safety Report 6305104-4 (Version None)
Quarter: 2009Q3

REPORT INFORMATION
  Report Type: 
  Country: None (occurrence: None)
  Receive Date: 20090811
  Receipt Date: 20090731
  Transmission Date: 20100115
  Serious: Yes (Death)
  Sender: FDA-Public Use
  Company Number: KR-PFIZER INC-2009250322

PATIENT
  Age: 43 Year

DRUGS (2)
  1. VORICONAZOLE [Suspect]
     Indication: ASPERGILLOSIS
     Dosage: 200 MG, 2X/DAY
     Route: 042
     Dates: start: 20080824, end: 20080830
  2. KETAMINE [Concomitant]
     Dates: start: 20080824, end: 20080829

REACTIONS (1)
  - DEATH [None]
